FAERS Safety Report 18706836 (Version 1)
Quarter: 2021Q1

REPORT INFORMATION
  Report Type: Spontaneous
  Country: US (occurrence: US)
  Receive Date: 20210106
  Receipt Date: 20210106
  Transmission Date: 20210419
  Serious: Yes (Death)
  Sender: FDA-Public Use
  Company Number: US-BAYER-2020-287871

PATIENT
  Age: 25 Year
  Sex: Female

DRUGS (8)
  1. OXYCODONE [Suspect]
     Active Substance: OXYCODONE
  2. MORPHINE [Suspect]
     Active Substance: MORPHINE
  3. ALPRAZOLAM. [Suspect]
     Active Substance: ALPRAZOLAM
  4. LAMOTRIGINE. [Suspect]
     Active Substance: LAMOTRIGINE
  5. PARACETAMOL [Suspect]
     Active Substance: ACETAMINOPHEN
     Dosage: UNK
  6. DIHYDROCODEINE [Suspect]
     Active Substance: DIHYDROCODEINE
  7. HYDROCODONE [Suspect]
     Active Substance: HYDROCODONE
  8. CODEINE [Suspect]
     Active Substance: CODEINE

REACTIONS (2)
  - Product use issue [Fatal]
  - Toxicity to various agents [Fatal]
